FAERS Safety Report 16767872 (Version 2)
Quarter: 2019Q3

REPORT INFORMATION
  Report Type: Spontaneous
  Country: US (occurrence: US)
  Receive Date: 20190903
  Receipt Date: 20190925
  Transmission Date: 20191005
  Serious: Yes (Other)
  Sender: FDA-Public Use
  Company Number: US-SA-2019SA243344

PATIENT
  Sex: Female

DRUGS (1)
  1. CAPZASIN QUICK RELIEF GEL [Suspect]
     Active Substance: CAPSAICIN

REACTIONS (4)
  - Drug ineffective [Unknown]
  - Condition aggravated [Unknown]
  - Neuropathy peripheral [Unknown]
  - Burning sensation [Unknown]
